FAERS Safety Report 7012816-6 (Version None)
Quarter: 2010Q3

REPORT INFORMATION
  Report Type: 
  Country: None (occurrence: None)
  Receive Date: 20100924
  Receipt Date: 20100914
  Transmission Date: 20110219
  Serious: Yes (Hospitalization, Disabling)
  Sender: FDA-Public Use
  Company Number: B0674038A

PATIENT
  Sex: Male

DRUGS (7)
  1. LAMICTAL [Suspect]
     Indication: EPILEPSY
     Route: 048
     Dates: start: 20091224, end: 20100303
  2. NIFLURIL [Suspect]
     Route: 048
     Dates: start: 20100101
  3. LEUPROLIDE ACETATE [Concomitant]
     Dosage: 1UNIT EVERY 3 MONTHS
     Route: 030
     Dates: start: 20091222
  4. TAHOR [Concomitant]
     Dosage: 20MG PER DAY
     Route: 048
     Dates: start: 20081101, end: 20100301
  5. TRIMETAZIDINE [Concomitant]
     Dosage: 20MG TWICE PER DAY
     Route: 048
     Dates: start: 20081101, end: 20100301
  6. COKENZEN [Concomitant]
     Route: 048
     Dates: start: 20090801, end: 20100301
  7. CARBAMAZEPINE [Concomitant]
     Dosage: 1MG PER DAY
     Route: 048
     Dates: end: 20100125

REACTIONS (21)
  - ASPARTATE AMINOTRANSFERASE INCREASED [None]
  - C-REACTIVE PROTEIN INCREASED [None]
  - CHILLS [None]
  - CONJUNCTIVITIS [None]
  - DYSPHAGIA [None]
  - EYELID OEDEMA [None]
  - GENERAL PHYSICAL HEALTH DETERIORATION [None]
  - GLOSSITIS [None]
  - HYPERHIDROSIS [None]
  - HYPOTENSION [None]
  - LACRIMATION INCREASED [None]
  - LUNG DISORDER [None]
  - OEDEMA MOUTH [None]
  - OESOPHAGEAL OEDEMA [None]
  - PYREXIA [None]
  - RASH VESICULAR [None]
  - RENAL FAILURE ACUTE [None]
  - SKIN EXFOLIATION [None]
  - STOMATITIS [None]
  - TACHYCARDIA [None]
  - TOXIC EPIDERMAL NECROLYSIS [None]
